FAERS Safety Report 17818885 (Version 5)
Quarter: 2020Q3

REPORT INFORMATION
  Report Type: Report from Study
  Country: ES (occurrence: ES)
  Receive Date: 20200522
  Receipt Date: 20200720
  Transmission Date: 20201102
  Serious: Yes (Death)
  Sender: FDA-Public Use
  Company Number: ES-UCBSA-2020020856

PATIENT
  Age: 59 Year
  Sex: Male

DRUGS (1)
  1. BRIVARACETAM [Suspect]
     Active Substance: BRIVARACETAM
     Indication: EPILEPSY
     Dosage: 50 MILLIGRAM, 2X/DAY (BID)
     Dates: start: 20190429, end: 20190729

REACTIONS (2)
  - Death [Fatal]
  - Adverse event [Unknown]

NARRATIVE: CASE EVENT DATE: 20190801
